FAERS Safety Report 22153422 (Version 1)
Quarter: 2023Q1

REPORT INFORMATION
  Report Type: Spontaneous
  Country: US (occurrence: US)
  Receive Date: 20230329
  Receipt Date: 20230329
  Transmission Date: 20230418
  Serious: No
  Sender: FDA-Public Use
  Company Number: US-JNJFOC-20230360798

PATIENT
  Age: 59 Year
  Sex: Male
  Weight: 106.69 kg

DRUGS (2)
  1. STELARA [Suspect]
     Active Substance: USTEKINUMAB
     Indication: Psoriatic arthropathy
     Route: 058
     Dates: start: 20211214
  2. STELARA [Suspect]
     Active Substance: USTEKINUMAB
     Indication: Psoriasis

REACTIONS (3)
  - Pain in extremity [Unknown]
  - Psoriasis [Unknown]
  - Weight increased [Unknown]

NARRATIVE: CASE EVENT DATE: 20221214
